FAERS Safety Report 10290708 (Version 1)
Quarter: 2014Q3

REPORT INFORMATION
  Report Type: Spontaneous
  Country: US (occurrence: US)
  Receive Date: 20140710
  Receipt Date: 20140710
  Transmission Date: 20150326
  Serious: Yes (Other)
  Sender: FDA-Public Use
  Company Number: US-PURDUE-USA-2014-0115424

PATIENT
  Age: 32 Year
  Sex: Female

DRUGS (1)
  1. OXYCODONE HYDROCHLORIDE (SIMILAR TO NDA 22-272) [Suspect]
     Active Substance: OXYCODONE HYDROCHLORIDE
     Indication: DRUG ABUSE

REACTIONS (6)
  - Child abuse [Unknown]
  - Drug abuse [Unknown]
  - Memory impairment [Unknown]
  - Gait disturbance [Unknown]
  - Euphoric mood [Unknown]
  - Dysarthria [Unknown]
